FAERS Safety Report 20014029 (Version 3)
Quarter: 2021Q4

REPORT INFORMATION
  Report Type: Spontaneous
  Country: US (occurrence: US)
  Receive Date: 20211029
  Receipt Date: 20211104
  Transmission Date: 20220303
  Serious: Yes (Hospitalization)
  Sender: FDA-Public Use
  Company Number: US-CELGENE-USA-20211006931

PATIENT
  Age: 97 Year
  Sex: Male

DRUGS (1)
  1. REVLIMID [Suspect]
     Active Substance: LENALIDOMIDE
     Indication: Myelodysplastic syndrome
     Dosage: 15 MILLIGRAM
     Route: 048
     Dates: start: 20201216

REACTIONS (3)
  - Head injury [Unknown]
  - COVID-19 [Unknown]
  - Fall [Unknown]

NARRATIVE: CASE EVENT DATE: 20211006
